FAERS Safety Report 5473801-9 (Version None)
Quarter: 2007Q4

REPORT INFORMATION
  Report Type: 
  Country: None (occurrence: None)
  Receive Date: 20071001
  Receipt Date: 20030903
  Transmission Date: 20080405
  Serious: Yes (Other)
  Sender: FDA-Public Use
  Company Number: US-PFIZER INC-2007057833

PATIENT
  Age: 80 Year
  Sex: Male

DRUGS (1)
  1. BEXTRA [Suspect]

REACTIONS (4)
  - ORAL MUCOSAL BLISTERING [None]
  - RASH [None]
  - STOMATITIS [None]
  - SWELLING FACE [None]
